FAERS Safety Report 4722309-4 (Version None)
Quarter: 2005Q3

REPORT INFORMATION
  Report Type: 
  Country: None (occurrence: None)
  Receive Date: 20050722
  Receipt Date: 20041020
  Transmission Date: 20060218
  Serious: No
  Sender: FDA-Public Use
  Company Number: US-GLAXOSMITHKLINE-A0530637A

PATIENT
  Age: 69 Year
  Sex: Female

DRUGS (11)
  1. AVANDIA [Suspect]
     Dosage: 2MG PER DAY
     Route: 048
  2. DIGITEK [Concomitant]
  3. COZAAR [Concomitant]
  4. TRICOR [Concomitant]
  5. GLUCOPHAGE [Concomitant]
  6. LIPITOR [Concomitant]
  7. SYNTHROID [Concomitant]
  8. ALLOPURINOL [Concomitant]
  9. COUMADIN [Concomitant]
  10. ASPIRIN [Concomitant]
  11. PAXIL CR [Concomitant]

REACTIONS (1)
  - SOMNOLENCE [None]
